FAERS Safety Report 18884731 (Version 2)
Quarter: 2021Q1

REPORT INFORMATION
  Report Type: Spontaneous
  Country: GB (occurrence: GB)
  Receive Date: 20210212
  Receipt Date: 20210309
  Transmission Date: 20210420
  Serious: Yes (Other)
  Sender: FDA-Public Use
  Company Number: GB-BEH-2021128046

PATIENT
  Sex: Female

DRUGS (2)
  1. RHOPHYLAC [Suspect]
     Active Substance: HUMAN RHO(D) IMMUNE GLOBULIN
     Indication: PRODUCT USED FOR UNKNOWN INDICATION
     Dosage: UNK
     Route: 064
     Dates: start: 201910
  2. RHOPHYLAC [Suspect]
     Active Substance: HUMAN RHO(D) IMMUNE GLOBULIN
     Indication: PRODUCT USED FOR UNKNOWN INDICATION
     Dosage: UNK
     Route: 064
     Dates: start: 201910

REACTIONS (13)
  - Antibody test positive [Unknown]
  - Language disorder [Recovered/Resolved]
  - Dyskinesia [Unknown]
  - Dyskinesia [Recovered/Resolved]
  - Personality change [Recovered/Resolved]
  - Foetal exposure during pregnancy [Recovered/Resolved]
  - Regressive behaviour [Recovered/Resolved]
  - Gastrointestinal disorder [Unknown]
  - Irritability [Recovered/Resolved]
  - Foetal exposure during pregnancy [Unknown]
  - C-reactive protein increased [Unknown]
  - Balance disorder [Recovered/Resolved]
  - Sepsis [Unknown]

NARRATIVE: CASE EVENT DATE: 202004
